FAERS Safety Report 11212488 (Version 3)
Quarter: 2015Q3

REPORT INFORMATION
  Report Type: Spontaneous
  Country: SI (occurrence: SI)
  Receive Date: 20150623
  Receipt Date: 20150914
  Transmission Date: 20151125
  Serious: Yes (Hospitalization, Other)
  Sender: FDA-Public Use
  Company Number: SI-AMGEN-SVNSP2015060129

PATIENT
  Age: 82 Year
  Sex: Female
  Weight: 63 kg

DRUGS (12)
  1. EUTIROX [Concomitant]
     Active Substance: LEVOTHYROXINE SODIUM
     Dosage: 150
     Route: 048
  2. TEGRETOL [Concomitant]
     Active Substance: CARBAMAZEPINE
     Dosage: 800 MG, QD
     Route: 048
  3. CALCIUM [Concomitant]
     Active Substance: CALCIUM
     Dosage: UNK
     Dates: start: 2008
  4. PLIVIT D3 [Concomitant]
     Active Substance: CHOLECALCIFEROL
     Dosage: UNK
  5. LEXAURIN [Concomitant]
     Active Substance: BROMAZEPAM
  6. CALCIUM CARBONATE. [Concomitant]
     Active Substance: CALCIUM CARBONATE
     Indication: MINERAL SUPPLEMENTATION
     Dosage: 1000 MG, QD
  7. PROLIA [Suspect]
     Active Substance: DENOSUMAB
     Indication: OSTEOPOROSIS POSTMENOPAUSAL
     Dosage: 60 MG, Q6MO
     Route: 058
     Dates: start: 20150414
  8. VITAMIN D                          /00107901/ [Concomitant]
     Active Substance: ERGOCALCIFEROL
     Dosage: UNK
     Dates: start: 2008
  9. COLECALCIFEROL [Concomitant]
     Active Substance: CHOLECALCIFEROL
     Indication: VITAMIN SUPPLEMENTATION
     Dosage: 6000 IE, QWK
     Dates: start: 2010
  10. KEPPRA [Concomitant]
     Active Substance: LEVETIRACETAM
     Dosage: 1500 UNK, BID
     Route: 048
  11. ROCALTROL [Concomitant]
     Active Substance: CALCITRIOL
     Dosage: UNK
  12. BYOL [Concomitant]
     Active Substance: BISOPROLOL

REACTIONS (9)
  - Hyperparathyroidism secondary [Unknown]
  - Blood phosphorus decreased [Unknown]
  - Vitamin D decreased [Unknown]
  - Electrocardiogram QRS complex prolonged [Unknown]
  - Toothache [Unknown]
  - Generalised tonic-clonic seizure [Unknown]
  - Epilepsy [Recovering/Resolving]
  - Hypocalcaemia [Recovered/Resolved]
  - Arthralgia [Unknown]

NARRATIVE: CASE EVENT DATE: 20150505
